FAERS Safety Report 4461249-5 (Version None)
Quarter: 2004Q3

REPORT INFORMATION
  Report Type: 
  Country: None (occurrence: None)
  Receive Date: 20040928
  Receipt Date: 20040917
  Transmission Date: 20050211
  Serious: Yes (Hospitalization)
  Sender: FDA-Public Use
  Company Number: CH-ROCHE-380767

PATIENT
  Age: 28 Year
  Sex: Male
  Weight: 54 kg

DRUGS (11)
  1. PEGASYS [Suspect]
     Indication: HEPATITIS C
     Route: 058
     Dates: start: 20040330
  2. COPEGUS [Interacting]
     Indication: HEPATITIS C
     Route: 048
     Dates: start: 20040330
  3. COPEGUS [Interacting]
     Route: 048
  4. ZYPREXA [Suspect]
     Indication: DRUG USE FOR UNKNOWN INDICATION
     Route: 048
  5. EFFEXOR [Concomitant]
     Indication: DEPRESSION
     Route: 048
  6. METHADONE HCL [Concomitant]
     Indication: DRUG WITHDRAWAL MAINTENANCE THERAPY
     Route: 048
  7. TRAZODONE HCL [Concomitant]
     Indication: DEPRESSION
     Route: 048
  8. RIVOTRIL [Concomitant]
     Route: 048
  9. REMERON [Concomitant]
     Indication: DEPRESSION
     Route: 048
  10. ANTABUSE [Concomitant]
     Indication: ALCOHOLISM
     Route: 048
  11. PANTOPRAZOLE SODIUM [Concomitant]
     Indication: OESOPHAGITIS
     Route: 048

REACTIONS (5)
  - ANAEMIA [None]
  - DRUG INTERACTION [None]
  - EXTRAPYRAMIDAL DISORDER [None]
  - MALAISE [None]
  - MUSCLE RIGIDITY [None]
